FAERS Safety Report 5331932-8 (Version None)
Quarter: 2007Q2

REPORT INFORMATION
  Report Type: 
  Country: None (occurrence: None)
  Receive Date: 20070523
  Receipt Date: 20070517
  Transmission Date: 20071010
  Serious: Yes (Death, Life-Threatening, Hospitalization)
  Sender: FDA-Public Use
  Company Number: JP-NOVOPROD-262079

PATIENT
  Age: 19 Year
  Sex: Male
  Weight: 47 kg

DRUGS (2)
  1. NORDITROPIN [Suspect]
     Indication: GROWTH HORMONE DEFICIENCY
     Dosage: 2.5 U - 4 U, QD
     Route: 058
     Dates: start: 19931213, end: 19980327
  2. THYRADIN S [Concomitant]
     Dosage: 150 MG, QD
     Route: 048
     Dates: start: 19910101

REACTIONS (1)
  - NON-HODGKIN'S LYMPHOMA [None]
